FAERS Safety Report 13941236 (Version 1)
Quarter: 2017Q3

REPORT INFORMATION
  Report Type: Spontaneous
  Country: US (occurrence: US)
  Receive Date: 20170906
  Receipt Date: 20170906
  Transmission Date: 20171127
  Serious: No
  Sender: FDA-Public Use
  Company Number: US-SUNOVION-2017SUN003796

PATIENT

DRUGS (4)
  1. SEROQUEL [Concomitant]
     Active Substance: QUETIAPINE FUMARATE
  2. LATUDA [Suspect]
     Active Substance: LURASIDONE HYDROCHLORIDE
     Route: 048
  3. LATUDA [Suspect]
     Active Substance: LURASIDONE HYDROCHLORIDE
     Dosage: UNK
     Route: 048
  4. XANAX [Concomitant]
     Active Substance: ALPRAZOLAM
     Dosage: 4 MG, QD

REACTIONS (6)
  - Tremor [Unknown]
  - Insomnia [Unknown]
  - Dysphemia [Unknown]
  - Anxiety [Unknown]
  - Mania [Unknown]
  - Panic attack [Unknown]
